FAERS Safety Report 7354762-4 (Version None)
Quarter: 2011Q1

REPORT INFORMATION
  Report Type: 
  Country: None (occurrence: None)
  Receive Date: 20110316
  Receipt Date: 20110309
  Transmission Date: 20110831
  Serious: Yes (Death)
  Sender: FDA-Public Use
  Company Number: DE-CELGENEUS-062-21880-11031193

PATIENT
  Age: 69 Year
  Sex: Female
  Weight: 61 kg

DRUGS (2)
  1. REVLIMID [Suspect]
     Indication: MULTIPLE MYELOMA
     Route: 048
  2. CAELYX [Concomitant]
     Indication: MULTIPLE MYELOMA
     Route: 065

REACTIONS (1)
  - DEATH [None]
